FAERS Safety Report 7397176-3 (Version None)
Quarter: 2011Q2

REPORT INFORMATION
  Report Type: 
  Country: None (occurrence: None)
  Receive Date: 20110406
  Receipt Date: 20110404
  Transmission Date: 20111010
  Serious: Yes (Other)
  Sender: FDA-Public Use
  Company Number: D0069504A

PATIENT
  Sex: Male

DRUGS (4)
  1. BLOPRESS [Concomitant]
     Indication: HYPERTENSION
     Dosage: 57MG PER DAY
     Route: 065
  2. NEBIVOLOL [Concomitant]
     Indication: HYPERTENSION
     Dosage: 5MG PER DAY
     Route: 065
  3. REQUIP [Suspect]
     Indication: PARKINSON'S DISEASE
     Dosage: 12MG PER DAY
     Route: 048
     Dates: start: 20100601
  4. AZILECT [Concomitant]
     Indication: PARKINSON'S DISEASE
     Dosage: 1MG PER DAY
     Route: 048
     Dates: start: 20090101

REACTIONS (1)
  - PERICARDIAL EFFUSION [None]
